FAERS Safety Report 15376064 (Version 5)
Quarter: 2019Q2

REPORT INFORMATION
  Report Type: Spontaneous
  Country: CO (occurrence: CO)
  Receive Date: 20180912
  Receipt Date: 20190401
  Transmission Date: 20190711
  Serious: Yes (Other)
  Sender: FDA-Public Use
  Company Number: CO-ROCHE-2182414

PATIENT
  Sex: Male

DRUGS (4)
  1. ONDANSETRON [Concomitant]
     Active Substance: ONDANSETRON
  2. XELODA [Suspect]
     Active Substance: CAPECITABINE
     Indication: COLORECTAL CANCER
     Dosage: 1000MG IN THE MORNING AND 1500MG IN THE AFTERNOON
     Route: 048
     Dates: start: 201807
  3. AVASTIN [Suspect]
     Active Substance: BEVACIZUMAB
     Indication: COLORECTAL CANCER
     Route: 065
     Dates: start: 201807
  4. XELODA [Suspect]
     Active Substance: CAPECITABINE
     Dosage: 4 TABLETS DAILY.
     Route: 048

REACTIONS (13)
  - Dry skin [Recovered/Resolved]
  - Gingival pain [Recovering/Resolving]
  - Dermal cyst [Not Recovered/Not Resolved]
  - Onychomadesis [Recovered/Resolved]
  - Diarrhoea [Not Recovered/Not Resolved]
  - Skin discolouration [Recovering/Resolving]
  - Skin disorder [Recovering/Resolving]
  - Nail disorder [Not Recovered/Not Resolved]
  - Toxicity to various agents [Recovering/Resolving]
  - Vomiting [Not Recovered/Not Resolved]
  - Skin discolouration [Recovered/Resolved]
  - Skin exfoliation [Recovering/Resolving]
  - Hyperaesthesia [Recovering/Resolving]

NARRATIVE: CASE EVENT DATE: 20180820
